FAERS Safety Report 14782324 (Version 1)
Quarter: 2018Q2

REPORT INFORMATION
  Report Type: Spontaneous
  Country: FI (occurrence: FI)
  Receive Date: 20180420
  Receipt Date: 20180420
  Transmission Date: 20180711
  Serious: Yes (Other)
  Sender: FDA-Public Use
  Company Number: FI-ROCHE-2109748

PATIENT
  Age: 48 Year
  Sex: Female

DRUGS (4)
  1. CARDACE (FINLAND) [Concomitant]
     Indication: BLOOD PRESSURE MEASUREMENT
  2. PREDNISOLON [Concomitant]
     Active Substance: PREDNISOLONE
  3. ROACTEMRA [Suspect]
     Active Substance: TOCILIZUMAB
     Indication: JUVENILE IDIOPATHIC ARTHRITIS
     Route: 041
     Dates: start: 201703, end: 201704
  4. ORUDIS [Concomitant]
     Active Substance: KETOPROFEN
     Indication: PAIN
     Route: 048

REACTIONS (1)
  - Psoriasis [Not Recovered/Not Resolved]

NARRATIVE: CASE EVENT DATE: 201704
